FAERS Safety Report 9324197 (Version 2)
Quarter: 2013Q3

REPORT INFORMATION
  Report Type: Spontaneous
  Country: JP (occurrence: JP)
  Receive Date: 20130603
  Receipt Date: 20130812
  Transmission Date: 20140515
  Serious: Yes (Hospitalization)
  Sender: FDA-Public Use
  Company Number: JP-ELI_LILLY_AND_COMPANY-JP201305009157

PATIENT
  Age: 79 Year
  Sex: Male

DRUGS (3)
  1. ALIMTA [Suspect]
     Route: 042
  2. FOLIC ACID [Concomitant]
  3. VITAMIN B12 [Concomitant]

REACTIONS (1)
  - Lung disorder [Recovered/Resolved]
